FAERS Safety Report 4792750-2 (Version None)
Quarter: 2005Q4

REPORT INFORMATION
  Report Type: 
  Country: None (occurrence: None)
  Receive Date: 20051010
  Receipt Date: 20050815
  Transmission Date: 20060501
  Serious: Yes (Hospitalization, Other)
  Sender: FDA-Public Use
  Company Number: US-MERCK-0508USA02971

PATIENT
  Age: 76 Year
  Sex: Female
  Weight: 60 kg

DRUGS (10)
  1. VIOXX [Suspect]
     Indication: ARTHRITIS
     Route: 048
     Dates: start: 20000101, end: 20010801
  2. VIOXX [Suspect]
     Route: 048
     Dates: start: 20000101, end: 20010801
  3. PREMARIN [Concomitant]
     Indication: HORMONE REPLACEMENT THERAPY
     Route: 065
  4. PROCARDIA XL [Concomitant]
     Indication: HYPERTENSION
     Route: 065
     Dates: start: 19940101, end: 20031101
  5. DETROL [Concomitant]
     Indication: URINARY INCONTINENCE
     Route: 065
  6. PROTONIX [Concomitant]
     Indication: GASTRIC ULCER
     Route: 048
  7. PROTONIX [Concomitant]
     Indication: OESOPHAGEAL CANDIDIASIS
     Route: 048
  8. LIBRIUM [Concomitant]
     Indication: ANXIETY
     Route: 065
  9. HALCION [Concomitant]
     Indication: SLEEP DISORDER
     Route: 065
  10. DIAZEPAM [Concomitant]
     Route: 065

REACTIONS (41)
  - ABDOMINAL PAIN UPPER [None]
  - AMNESIA [None]
  - ARTHROPATHY [None]
  - ASTHENIA [None]
  - BALANCE DISORDER [None]
  - CARDIAC FAILURE CONGESTIVE [None]
  - CEREBRAL INFARCTION [None]
  - CEREBROVASCULAR ACCIDENT [None]
  - CHEST DISCOMFORT [None]
  - CONFUSIONAL STATE [None]
  - COUGH [None]
  - DIASTOLIC DYSFUNCTION [None]
  - DISORIENTATION [None]
  - DIZZINESS [None]
  - DYSPNOEA EXERTIONAL [None]
  - ELECTROCARDIOGRAM QT PROLONGED [None]
  - FATIGUE [None]
  - FLUID RETENTION [None]
  - GAIT DISTURBANCE [None]
  - HEADACHE [None]
  - HIATUS HERNIA [None]
  - HYPERTENSION [None]
  - HYPONATRAEMIA [None]
  - INSOMNIA [None]
  - LABILE HYPERTENSION [None]
  - LIMB INJURY [None]
  - NAUSEA [None]
  - OEDEMA PERIPHERAL [None]
  - PALPITATIONS [None]
  - PERIPHERAL SENSORY NEUROPATHY [None]
  - POLYNEUROPATHY [None]
  - ROTATOR CUFF SYNDROME [None]
  - SCOLIOSIS [None]
  - SURGERY [None]
  - THINKING ABNORMAL [None]
  - TRANSIENT ISCHAEMIC ATTACK [None]
  - VENTRICULAR EXTRASYSTOLES [None]
  - VENTRICULAR HYPERTROPHY [None]
  - VERTIGO [None]
  - VOMITING [None]
  - WANDERING PACEMAKER [None]
